FAERS Safety Report 5514896-3 (Version None)
Quarter: 2007Q4

REPORT INFORMATION
  Report Type: 
  Country: None (occurrence: None)
  Receive Date: 20071113
  Receipt Date: 20060922
  Transmission Date: 20080405
  Serious: No
  Sender: FDA-Public Use
  Company Number: A0621159A

PATIENT
  Sex: Female

DRUGS (1)
  1. COREG [Suspect]
     Route: 048
     Dates: start: 20060901, end: 20060901

REACTIONS (3)
  - FEELING ABNORMAL [None]
  - OEDEMA PERIPHERAL [None]
  - SKIN DISCOLOURATION [None]
